FAERS Safety Report 16989383 (Version 7)
Quarter: 2020Q1

REPORT INFORMATION
  Report Type: Report from Study
  Country: TR (occurrence: TR)
  Receive Date: 20191104
  Receipt Date: 20200316
  Transmission Date: 20200409
  Serious: Yes (Death, Hospitalization)
  Sender: FDA-Public Use
  Company Number: TR-EISAI MEDICAL RESEARCH-EC-2019-064631

PATIENT
  Age: 67 Year
  Sex: Male
  Weight: 61 kg

DRUGS (28)
  1. DUROGESIC [Concomitant]
     Active Substance: FENTANYL
     Dates: start: 20191010, end: 20191015
  2. OKSAPAR [Concomitant]
     Dates: start: 20191016, end: 20191018
  3. CITOLES [Concomitant]
     Active Substance: ESCITALOPRAM OXALATE
     Dates: start: 20191018, end: 20191018
  4. PEMBROLIZUMAB. [Suspect]
     Active Substance: PEMBROLIZUMAB
     Indication: TRANSITIONAL CELL CARCINOMA
     Route: 041
     Dates: start: 20190829, end: 20190919
  5. ARVELES [Concomitant]
     Active Substance: DEXKETOPROFEN
     Dates: start: 20191016, end: 20191016
  6. MEGACE [Concomitant]
     Active Substance: MEGESTROL ACETATE
     Dates: start: 20190928
  7. IMPACT [Concomitant]
     Dates: start: 20191010
  8. BETASERC [Concomitant]
     Active Substance: BETAHISTINE
     Dates: start: 20191019, end: 20191026
  9. GERALGINE PLUS [Concomitant]
     Dates: start: 20190928, end: 20191016
  10. BECLOMETHASONE DIPROPIONATE [Concomitant]
     Active Substance: BECLOMETHASONE DIPROPIONATE
     Dates: start: 201801
  11. PREDNOL [Concomitant]
     Dates: start: 20191016, end: 20191017
  12. DRAMAMINE [Concomitant]
     Active Substance: DIMENHYDRINATE
     Dates: start: 20191016, end: 20191018
  13. TILCOTIL [Concomitant]
     Active Substance: TENOXICAM
     Dates: start: 20191017, end: 20191018
  14. RANIVER [Concomitant]
     Dates: start: 20191016, end: 20191018
  15. TAVANIC [Concomitant]
     Active Substance: LEVOFLOXACIN
     Dates: start: 20191026, end: 20191026
  16. DESEFIN [Concomitant]
     Active Substance: CEFTRIAXONE SODIUM
     Dates: start: 20191026, end: 20191026
  17. LENVATINIB [Suspect]
     Active Substance: LENVATINIB
     Indication: TRANSITIONAL CELL CARCINOMA
     Route: 048
     Dates: start: 20190829, end: 20191011
  18. PREDNOL [Concomitant]
     Dates: start: 20191026, end: 20191026
  19. PEMBROLIZUMAB. [Suspect]
     Active Substance: PEMBROLIZUMAB
     Route: 041
     Dates: start: 20191010, end: 20191010
  20. TRAMOSEL [Concomitant]
     Dates: start: 20191016, end: 20191019
  21. BLOOD CELLS RED [Concomitant]
     Dates: start: 20191026, end: 20191026
  22. CLEXANE [Concomitant]
     Active Substance: ENOXAPARIN SODIUM
     Dates: start: 20191019, end: 20191026
  23. NEXIUM [Concomitant]
     Active Substance: ESOMEPRAZOLE MAGNESIUM
     Dates: start: 20190928, end: 20191016
  24. PAROL [Concomitant]
     Active Substance: ACETAMINOPHEN
     Dates: start: 20191016, end: 20191018
  25. XANAX [Concomitant]
     Active Substance: ALPRAZOLAM
     Dates: start: 20191016, end: 20191018
  26. EMETRIL [Concomitant]
     Dates: start: 20191010, end: 20191016
  27. FOSTER [Concomitant]
     Active Substance: BECLOMETHASONE\FORMOTEROL
     Dates: start: 201801, end: 20191016
  28. IESEF [Concomitant]
     Dates: start: 20191012, end: 20191021

REACTIONS (1)
  - Platelet count decreased [Recovering/Resolving]

NARRATIVE: CASE EVENT DATE: 20191026
